FAERS Safety Report 8282672-7 (Version None)
Quarter: 2012Q2

REPORT INFORMATION
  Report Type: 
  Country: None (occurrence: None)
  Receive Date: 20120413
  Receipt Date: 20120405
  Transmission Date: 20120825
  Serious: Yes (Death)
  Sender: FDA-Public Use
  Company Number: BR-ROCHE-1015703

PATIENT
  Sex: Female
  Weight: 77 kg

DRUGS (2)
  1. HERCEPTIN [Suspect]
     Indication: BREAST CANCER METASTATIC
     Dosage: DOSE OF LAST TRASTUZUMAB TAKEN: 462 MG
     Route: 042
     Dates: start: 20110926
  2. DOCETAXEL [Suspect]
     Indication: BREAST CANCER METASTATIC
     Dosage: DOS EOF LAST DOCETAXEL TAKEN : 138.3 MG
     Route: 042
     Dates: start: 20110926

REACTIONS (5)
  - RENAL FAILURE ACUTE [None]
  - SEPTIC SHOCK [None]
  - METABOLIC ACIDOSIS [None]
  - ATRIAL FIBRILLATION [None]
  - PNEUMONIA [None]
